FAERS Safety Report 5877689-3 (Version None)
Quarter: 2008Q3

REPORT INFORMATION
  Report Type: 
  Country: None (occurrence: None)
  Receive Date: 20080911
  Receipt Date: 20080903
  Transmission Date: 20090109
  Serious: Yes (Other)
  Sender: FDA-Public Use
  Company Number: DE-BAXTER-2008BH009269

PATIENT
  Sex: Female

DRUGS (4)
  1. SEVOFLURANE [Suspect]
     Indication: STUPOR
     Route: 055
     Dates: start: 20080502, end: 20080502
  2. VOLTAREN [Concomitant]
     Indication: STUPOR
     Route: 054
     Dates: start: 20080502, end: 20080502
  3. ULTIVA [Concomitant]
     Indication: STUPOR
     Route: 042
     Dates: start: 20080502, end: 20080502
  4. PROPOFOL [Concomitant]
     Indication: STUPOR
     Route: 042
     Dates: start: 20080502, end: 20080502

REACTIONS (2)
  - AGGRESSION [None]
  - CONVERSION DISORDER [None]
